FAERS Safety Report 9752752 (Version 1)
Quarter: 2013Q4

REPORT INFORMATION
  Report Type: Report from Study
  Country: JP (occurrence: JP)
  Receive Date: 20131213
  Receipt Date: 20131213
  Transmission Date: 20140711
  Serious: Yes (Death, Hospitalization)
  Sender: FDA-Public Use
  Company Number: JP-SA-2013SA128840

PATIENT
  Age: 12 Month
  Sex: Male
  Weight: 8.8 kg

DRUGS (28)
  1. THYMOGLOBULINE [Suspect]
     Indication: BONE MARROW CONDITIONING REGIMEN
     Route: 042
     Dates: start: 20130701, end: 20130702
  2. FLUDARA [Suspect]
     Indication: ACUTE MYELOID LEUKAEMIA
     Route: 065
     Dates: start: 20130730, end: 20130731
  3. ALKERAN [Suspect]
     Indication: ACUTE MYELOID LEUKAEMIA
     Route: 065
     Dates: start: 20130730, end: 20130731
  4. ORGARAN [Concomitant]
     Indication: PROPHYLAXIS
     Dates: start: 20130620, end: 20130806
  5. AMIKACIN SULFATE [Concomitant]
     Indication: INFECTION PROPHYLAXIS
     Dates: start: 20130701, end: 20130806
  6. MEROPEN [Concomitant]
     Indication: INFECTION PROPHYLAXIS
     Dates: start: 20130701, end: 20130719
  7. FENTANYL [Concomitant]
     Indication: ACUTE MYELOID LEUKAEMIA
     Dates: start: 20130701, end: 20130807
  8. KYTRIL [Concomitant]
     Dates: start: 20130701, end: 20130731
  9. ANTITHROMBIN III [Concomitant]
     Dates: start: 20130702, end: 20130804
  10. PROGRAF [Concomitant]
     Indication: PROPHYLAXIS AGAINST GRAFT VERSUS HOST DISEASE
     Dates: start: 20130703, end: 20130718
  11. SOLU-CORTEF [Concomitant]
     Indication: PROPHYLAXIS
     Dates: start: 20130704, end: 20130802
  12. ALL OTHER THERAPEUTIC PRODUCTS [Concomitant]
     Indication: PROPHYLAXIS
     Dates: start: 20130704, end: 20130724
  13. ACICLOVIR [Concomitant]
     Indication: INFECTION
     Dates: start: 20130704, end: 20130719
  14. SANGLOPOR [Concomitant]
     Indication: INFECTION PROPHYLAXIS
     Dates: start: 20130705, end: 20130801
  15. PREDONINE [Concomitant]
     Indication: PROPHYLAXIS AGAINST GRAFT VERSUS HOST DISEASE
     Dates: start: 20130705, end: 20130716
  16. FUNGUARD [Concomitant]
     Indication: INFECTION PROPHYLAXIS
     Dates: start: 20130706, end: 20130806
  17. SANDIMMUN [Concomitant]
     Indication: PROPHYLAXIS AGAINST GRAFT VERSUS HOST DISEASE
     Dates: start: 20130801, end: 20130806
  18. ZOSYN [Concomitant]
     Indication: INFECTION PROPHYLAXIS
     Dates: start: 20130718, end: 20130807
  19. DEXART [Concomitant]
     Dates: start: 20130722, end: 20130730
  20. UROMITEXAN [Concomitant]
     Indication: PROPHYLAXIS
     Dates: start: 20130719, end: 20130719
  21. ENDOXAN [Concomitant]
     Indication: ACUTE MYELOID LEUKAEMIA
     Dates: start: 20130719, end: 20130719
  22. KETALAR [Concomitant]
     Indication: PAIN
     Dates: start: 20130716, end: 20130716
  23. ATROPINE [Concomitant]
     Indication: PROPHYLAXIS
     Dates: start: 20130716, end: 20130716
  24. URSO [Concomitant]
     Indication: PROPHYLAXIS
     Dates: start: 20130701, end: 20130806
  25. JUVELA [Concomitant]
     Indication: PROPHYLAXIS
     Dates: start: 20130701, end: 20130806
  26. EPADEL [Concomitant]
     Indication: PROPHYLAXIS
     Dates: start: 20130701, end: 20130806
  27. DORMICUM [Concomitant]
     Dates: start: 20130716, end: 20130716
  28. BAKTAR [Concomitant]
     Indication: INFECTION PROPHYLAXIS
     Dates: start: 20130701, end: 20130806

REACTIONS (3)
  - Cardio-respiratory arrest [Fatal]
  - Gastrointestinal haemorrhage [Not Recovered/Not Resolved]
  - Diarrhoea [Not Recovered/Not Resolved]
